FAERS Safety Report 9011147 (Version 1)
Quarter: 2013Q1

REPORT INFORMATION
  Report Type: Spontaneous
  Country: CN (occurrence: CN)
  Receive Date: 20130109
  Receipt Date: 20130109
  Transmission Date: 20140127
  Serious: Yes (Other)
  Sender: FDA-Public Use
  Company Number: CN-BAYER-2013-001658

PATIENT
  Age: 80 Year
  Sex: Male
  Weight: 60 kg

DRUGS (2)
  1. AVELOX [Suspect]
     Indication: BRONCHITIS CHRONIC
     Dosage: 0.4 G, QD
     Route: 048
     Dates: start: 20100106, end: 20100106
  2. AVELOX [Suspect]
     Indication: EMPHYSEMA

REACTIONS (1)
  - Mania [Recovering/Resolving]
